FAERS Safety Report 5629138-8 (Version None)
Quarter: 2008Q1

REPORT INFORMATION
  Report Type: 
  Country: None (occurrence: None)
  Receive Date: 20080216
  Receipt Date: 20080213
  Transmission Date: 20080703
  Serious: Yes (Life-Threatening)
  Sender: FDA-Public Use
  Company Number: US-BAXTER-2008BH001119

PATIENT
  Age: 67 Year
  Sex: Female
  Weight: 83 kg

DRUGS (2)
  1. HEPARIN SODIUM [Suspect]
     Indication: PROPHYLAXIS
     Route: 040
     Dates: start: 20080206, end: 20080206
  2. HEPARIN SODIUM [Suspect]
     Route: 040
     Dates: start: 20080206, end: 20080206

REACTIONS (2)
  - FLUSHING [None]
  - HYPOTENSION [None]
